FAERS Safety Report 5522847-0 (Version None)
Quarter: 2007Q4

REPORT INFORMATION
  Report Type: 
  Country: None (occurrence: None)
  Receive Date: 20071115
  Receipt Date: 20071029
  Transmission Date: 20080405
  Serious: Yes (Other)
  Sender: FDA-Public Use
  Company Number: STI-2007-01804

PATIENT
  Sex: Female

DRUGS (1)
  1. CLOBETASOL (UNSPECIFIED) (CLOBETASOL PROPIONATE) (CLOBETASOL PROPIONAT [Suspect]
     Indication: BLEPHARITIS
     Dosage: TOPICAL
     Route: 061

REACTIONS (4)
  - BLEPHARITIS [None]
  - DISEASE RECURRENCE [None]
  - DRUG DEPENDENCE [None]
  - ERYTHEMA [None]
